FAERS Safety Report 7381940-0 (Version None)
Quarter: 2011Q1

REPORT INFORMATION
  Report Type: 
  Country: None (occurrence: None)
  Receive Date: 20110329
  Receipt Date: 20110321
  Transmission Date: 20110831
  Serious: Yes (Hospitalization, Other)
  Sender: FDA-Public Use
  Company Number: GB-GENZYME-CLOF-1001498

PATIENT
  Sex: Female

DRUGS (8)
  1. DAUNORUBICIN [Suspect]
     Indication: ACUTE LEUKAEMIA
     Dosage: 50 MG/M2, QOD
     Route: 042
     Dates: start: 20110131, end: 20110204
  2. EVOLTRA [Suspect]
     Indication: ACUTE LEUKAEMIA
     Dosage: 20 MG/M2, QDX5
     Route: 042
     Dates: start: 20110131, end: 20110204
  3. NEUPOGEN [Suspect]
     Indication: ACUTE LEUKAEMIA
     Dosage: UNK
     Route: 042
     Dates: start: 20110131, end: 20110316
  4. NORETHISTERONE [Concomitant]
     Indication: PRODUCT USED FOR UNKNOWN INDICATION
     Dosage: 5 MG, UNK
     Dates: start: 20110308
  5. CYCLIZINE [Concomitant]
     Indication: PRODUCT USED FOR UNKNOWN INDICATION
     Dosage: 50 MG, UNK
     Dates: start: 20110310
  6. ITRACONAZOLE [Concomitant]
     Indication: PRODUCT USED FOR UNKNOWN INDICATION
     Dosage: 200 G, UNK
     Dates: start: 20110308
  7. RANITIDINE [Concomitant]
     Indication: PRODUCT USED FOR UNKNOWN INDICATION
     Dosage: 150 MG, UNK
     Dates: start: 20110310
  8. SANDO K [Concomitant]
     Indication: PRODUCT USED FOR UNKNOWN INDICATION
     Dosage: UNK
     Dates: start: 20110313

REACTIONS (3)
  - PNEUMONIA KLEBSIELLA [None]
  - NEUTROPENIA [None]
  - THROMBOCYTOPENIA [None]
